FAERS Safety Report 7452373-3 (Version None)
Quarter: 2011Q2

REPORT INFORMATION
  Report Type: 
  Country: None (occurrence: None)
  Receive Date: 20110502
  Receipt Date: 20110427
  Transmission Date: 20111010
  Serious: Yes (Death, Hospitalization, Disabling, Other)
  Sender: FDA-Public Use
  Company Number: US-US-EMD SERONO, INC.-230516J10USA

PATIENT
  Sex: Male

DRUGS (6)
  1. PRIMIDONE [Concomitant]
     Route: 065
  2. NEURONTIN [Concomitant]
     Indication: BURNING SENSATION
     Route: 065
  3. COUMADIN [Concomitant]
     Route: 065
  4. BACLOFEN [Concomitant]
     Indication: MUSCLE SPASMS
     Route: 065
  5. PROPRANOLOL [Concomitant]
     Route: 065
  6. REBIF [Suspect]
     Indication: MULTIPLE SCLEROSIS
     Route: 058
     Dates: start: 20021107

REACTIONS (12)
  - GANGRENE [None]
  - HYPOTENSION [None]
  - CARDIAC FAILURE CONGESTIVE [None]
  - CARDIAC DISORDER [None]
  - GASTRIC HAEMORRHAGE [None]
  - URINARY TRACT INFECTION [None]
  - HYPERTENSION [None]
  - URINARY INCONTINENCE [None]
  - DEATH [None]
  - BLOOD IRON INCREASED [None]
  - MULTIPLE SCLEROSIS [None]
  - CARDIOVASCULAR INSUFFICIENCY [None]
